FAERS Safety Report 5954704-X (Version None)
Quarter: 2008Q4

REPORT INFORMATION
  Report Type: 
  Country: None (occurrence: None)
  Receive Date: 20081117
  Receipt Date: 20081112
  Transmission Date: 20090506
  Serious: Yes (Death, Other)
  Sender: FDA-Public Use
  Company Number: PHHY2008GB28123

PATIENT
  Sex: Male

DRUGS (3)
  1. CLOZARIL [Suspect]
     Indication: SCHIZOPHRENIA
     Dosage: UNK
     Dates: start: 19921117, end: 20040101
  2. CLOZARIL [Suspect]
     Dosage: UNK
     Dates: start: 20070130
  3. DENZAPINE [Concomitant]
     Dosage: UNK
     Dates: start: 20040101, end: 20070130

REACTIONS (4)
  - ASTHENIA [None]
  - DEATH [None]
  - DYSPNOEA [None]
  - RESPIRATORY DISORDER [None]
